FAERS Safety Report 7454235-4 (Version None)
Quarter: 2011Q2

REPORT INFORMATION
  Report Type: 
  Country: None (occurrence: None)
  Receive Date: 20110503
  Receipt Date: 20110425
  Transmission Date: 20111010
  Serious: Yes (Other)
  Sender: FDA-Public Use
  Company Number: US-US-EMD SERONO, INC.-7056238

PATIENT
  Sex: Female
  Weight: 95 kg

DRUGS (7)
  1. LEVEMIR [Concomitant]
     Indication: DIABETES MELLITUS
  2. FUROSEMIDE [Concomitant]
     Indication: HYPERTENSION
  3. REBIF [Suspect]
     Indication: MULTIPLE SCLEROSIS
     Route: 058
     Dates: start: 20101025
  4. ACETAMINOPHEN [Concomitant]
     Indication: PREMEDICATION
  5. HUMALOG [Concomitant]
     Indication: DIABETES MELLITUS
  6. IBUPROFEN [Concomitant]
     Indication: PREMEDICATION
  7. AVAPRO [Concomitant]
     Indication: HYPERTENSION

REACTIONS (9)
  - CARDIAC VALVE DISEASE [None]
  - CARDIOMEGALY [None]
  - ANAL INJURY [None]
  - CHOLELITHIASIS [None]
  - FALL [None]
  - HEPATOMEGALY [None]
  - STREPTOCOCCAL ABSCESS [None]
  - VISUAL ACUITY REDUCED [None]
  - FUNGAL INFECTION [None]
